FAERS Safety Report 4492658-6 (Version None)
Quarter: 2004Q4

REPORT INFORMATION
  Report Type: 
  Country: None (occurrence: None)
  Receive Date: 20041029
  Receipt Date: 20041020
  Transmission Date: 20050328
  Serious: Yes (Death)
  Sender: FDA-Public Use
  Company Number: 2004240717JP

PATIENT
  Age: 10 Year
  Sex: Male

DRUGS (1)
  1. GENOTROPIN [Suspect]
     Indication: HYPOPITUITARISM

REACTIONS (4)
  - BRAIN COMPRESSION [None]
  - CRANIOPHARYNGIOMA [None]
  - INTRACRANIAL PRESSURE INCREASED [None]
  - NEOPLASM RECURRENCE [None]
